FAERS Safety Report 9320017 (Version 1)
Quarter: 2013Q2

REPORT INFORMATION
  Report Type: Spontaneous
  Country: US (occurrence: US)
  Receive Date: 20130530
  Receipt Date: 20130530
  Transmission Date: 20140414
  Serious: No
  Sender: FDA-Public Use
  Company Number: US-ASTRAZENECA-2013SE35229

PATIENT
  Age: 65 Year
  Sex: Female
  Weight: 50.8 kg

DRUGS (5)
  1. ARIMIDEX [Suspect]
     Indication: BREAST CANCER
     Route: 048
     Dates: start: 200501, end: 201001
  2. MULTIVITAMIN WITH IRON [Concomitant]
     Indication: MEDICAL DIET
     Dosage: UNK DAILY
     Route: 048
  3. VIT D [Concomitant]
     Indication: MEDICAL DIET
     Dosage: UNK DAILY
     Route: 048
  4. OMEGA 3 [Concomitant]
     Indication: MEDICAL DIET
     Dosage: UNK DAILY
     Route: 048
  5. CALCIUM WITH D [Concomitant]
     Indication: MEDICAL DIET
     Dosage: UNK DAILY
     Route: 048

REACTIONS (7)
  - Influenza like illness [Recovered/Resolved]
  - Jaw disorder [Not Recovered/Not Resolved]
  - Device failure [Not Recovered/Not Resolved]
  - Tooth fracture [Unknown]
  - Arthralgia [Recovered/Resolved]
  - Osteopenia [Not Recovered/Not Resolved]
  - Osteoporosis [Not Recovered/Not Resolved]
